FAERS Safety Report 10521840 (Version 1)
Quarter: 2014Q4

REPORT INFORMATION
  Report Type: Spontaneous
  Country: US (occurrence: None)
  Receive Date: 20141014
  Receipt Date: 20141014
  Transmission Date: 20150528
  Serious: Yes (Hospitalization)
  Sender: FDA-Public Use
  Company Number: QSC-2014-0707

PATIENT
  Age: 72 Year
  Sex: Male

DRUGS (16)
  1. H.P. ACTHAR [Suspect]
     Active Substance: CORTICOTROPIN
     Indication: GLOMERULONEPHRITIS MEMBRANOUS
     Dosage: 40 UNITS, BIW FOR 2 WEEKS, SUBCUTANEOUS
     Route: 058
     Dates: start: 20140728, end: 201408
  2. VITAMIN B6 [Concomitant]
     Active Substance: PYRIDOXINE HYDROCHLORIDE
  3. CO Q10 (UBIDECARENONE) [Concomitant]
  4. CLONIDINE HCL (CLONIDINE HYDROCHLORIDE) INJECTION [Concomitant]
     Active Substance: CLONIDINE HYDROCHLORIDE
  5. ALLOPURINOL. [Concomitant]
     Active Substance: ALLOPURINOL
  6. FOLIC ACID. [Concomitant]
     Active Substance: FOLIC ACID
  7. TACROLIMUS. [Concomitant]
     Active Substance: TACROLIMUS
  8. FUROSEMIDE. [Concomitant]
     Active Substance: FUROSEMIDE
  9. BABY ASPIRIN (ACETYLSALICYLIC ACID) [Concomitant]
     Active Substance: ASPIRIN
  10. COLACE [Concomitant]
     Active Substance: DOCUSATE SODIUM
  11. VITAMIN B12 /00056201/ (CYANOCOBALAMIN) [Concomitant]
  12. VITAMIN D3 [Concomitant]
     Active Substance: CHOLECALCIFEROL
  13. SILVADENE (SULFADIAZINE SILVER) [Concomitant]
  14. CARVEDILOL. [Concomitant]
     Active Substance: CARVEDILOL
  15. KRILL OIL (FISH OIL) [Concomitant]
  16. PLAVIX [Concomitant]
     Active Substance: CLOPIDOGREL BISULFATE

REACTIONS (2)
  - Acute kidney injury [None]
  - Generalised oedema [None]

NARRATIVE: CASE EVENT DATE: 20140926
